FAERS Safety Report 7659773-7 (Version None)
Quarter: 2011Q3

REPORT INFORMATION
  Report Type: 
  Country: None (occurrence: None)
  Receive Date: 20110805
  Receipt Date: 20110117
  Transmission Date: 20111222
  Serious: No
  Sender: FDA-Public Use
  Company Number: US-ABBOTT-11P-163-0695304-00

PATIENT
  Sex: Female
  Weight: 68.1 kg

DRUGS (4)
  1. VIMPAT [Concomitant]
     Indication: CONVULSION
  2. VITAMIN B [Concomitant]
     Indication: PRODUCT USED FOR UNKNOWN INDICATION
  3. MULTI-VITAMIN [Concomitant]
     Indication: PRODUCT USED FOR UNKNOWN INDICATION
  4. DEPAKOTE ER [Suspect]
     Indication: GRAND MAL CONVULSION
     Dosage: ALTERNATES 500MG 1 NIGHT + 1000MG OTHER NIGHT
     Dates: start: 20050101

REACTIONS (3)
  - HEAD INJURY [None]
  - FALL [None]
  - MUSCULOSKELETAL PAIN [None]
